FAERS Safety Report 20572007 (Version 1)
Quarter: 2022Q1

REPORT INFORMATION
  Report Type: Other
  Country: DE (occurrence: None)
  Receive Date: 20220309
  Receipt Date: 20220309
  Transmission Date: 20220423
  Serious: Yes (Other)
  Sender: FDA-Public Use
  Company Number: DE-ROCHE-3042121

PATIENT
  Age: 8 Year
  Sex: Male

DRUGS (1)
  1. TOCILIZUMAB [Suspect]
     Active Substance: TOCILIZUMAB
     Indication: Combined immunodeficiency
     Route: 065

REACTIONS (2)
  - Thalamic infarction [Unknown]
  - Haemorrhagic stroke [Unknown]
